FAERS Safety Report 15526833 (Version 1)
Quarter: 2018Q4

REPORT INFORMATION
  Report Type: Spontaneous
  Country: BR (occurrence: BR)
  Receive Date: 20181018
  Receipt Date: 20181018
  Transmission Date: 20190205
  Serious: Yes (Other)
  Sender: FDA-Public Use
  Company Number: BR-FRESENIUS KABI-FK201810791

PATIENT
  Age: 26 Year
  Sex: Male

DRUGS (7)
  1. HYDROCORTISONE. [Concomitant]
     Active Substance: HYDROCORTISONE
  2. PROMETHAZINE [Concomitant]
     Active Substance: PROMETHAZINE\PROMETHAZINE HYDROCHLORIDE
  3. LEVOFLOXACIN. [Concomitant]
     Active Substance: LEVOFLOXACIN
  4. RIFAMPICIN [Concomitant]
     Active Substance: RIFAMPIN
  5. SODIUM CHLORIDE. [Concomitant]
     Active Substance: SODIUM CHLORIDE
  6. GENTAMICINA LABESFAL 40 MG / 1 ML [Suspect]
     Active Substance: GENTAMICIN SULFATE
     Indication: OSTEOMYELITIS CHRONIC
     Dosage: 3DF/DAY
     Route: 065
     Dates: start: 20180928, end: 20180928
  7. TEICOPLANIN 400 MG [Suspect]
     Active Substance: TEICOPLANIN
     Indication: OSTEOMYELITIS CHRONIC
     Dosage: 800MG/DAY
     Route: 065
     Dates: start: 20180928, end: 20180928

REACTIONS (6)
  - Tachycardia [Recovered/Resolved]
  - Pruritus generalised [Recovered/Resolved]
  - Hypersensitivity [Recovered/Resolved]
  - Tremor [Recovered/Resolved]
  - Paraesthesia [Recovered/Resolved]
  - Rash maculo-papular [Recovered/Resolved]

NARRATIVE: CASE EVENT DATE: 20180928
